FAERS Safety Report 6300316-8 (Version None)
Quarter: 2009Q3

REPORT INFORMATION
  Report Type: 
  Country: None (occurrence: None)
  Receive Date: 20090803
  Receipt Date: 20090721
  Transmission Date: 20100115
  Serious: Yes (Death)
  Sender: FDA-Public Use
  Company Number: 8046284

PATIENT
  Age: 70 Year
  Sex: Male

DRUGS (3)
  1. KEPPRA [Suspect]
     Indication: PARTIAL SEIZURES
     Dosage: 250 MG 2/D;
     Dates: start: 20081201, end: 20090401
  2. KEPPRA [Suspect]
     Indication: PARTIAL SEIZURES
     Dosage: 500 MG 2/D;
     Dates: start: 20090401
  3. VALPROATE SODIUM [Concomitant]

REACTIONS (1)
  - PARKINSON'S DISEASE [None]
